FAERS Safety Report 10092640 (Version 1)
Quarter: 2014Q2

REPORT INFORMATION
  Report Type: Spontaneous
  Country: US (occurrence: US)
  Receive Date: 20140421
  Receipt Date: 20140421
  Transmission Date: 20141212
  Serious: No
  Sender: FDA-Public Use
  Company Number: US-SANOFI-AVENTIS-2013SA061781

PATIENT
  Age: 75 Year
  Sex: Female

DRUGS (1)
  1. ALLEGRA 24 HOUR [Suspect]
     Indication: SKIN DISORDER
     Route: 048
     Dates: start: 20130506, end: 20130614

REACTIONS (4)
  - Asthenia [Not Recovered/Not Resolved]
  - Gait disturbance [Not Recovered/Not Resolved]
  - Therapeutic response changed [Not Recovered/Not Resolved]
  - Dizziness [Not Recovered/Not Resolved]
